FAERS Safety Report 17314663 (Version 7)
Quarter: 2020Q2

REPORT INFORMATION
  Report Type: Report from Study
  Country: FR (occurrence: FR)
  Receive Date: 20200124
  Receipt Date: 20200616
  Transmission Date: 20200713
  Serious: Yes (Other)
  Sender: FDA-Public Use
  Company Number: FR-CELGENEUS-FRA-20200106323

PATIENT
  Age: 81 Year
  Sex: Female
  Weight: 48 kg

DRUGS (9)
  1. BACTRIM [Concomitant]
     Active Substance: SULFAMETHOXAZOLE\TRIMETHOPRIM
     Indication: PROPHYLAXIS
     Route: 065
  2. ISTODAX [Suspect]
     Active Substance: ROMIDEPSIN
     Indication: T-CELL LYMPHOMA
     Route: 041
     Dates: start: 20190823
  3. ISTODAX [Suspect]
     Active Substance: ROMIDEPSIN
     Route: 041
     Dates: start: 20200603
  4. LEDERFOLINE [Concomitant]
     Active Substance: LEUCOVORIN CALCIUM
     Indication: PRODUCT USED FOR UNKNOWN INDICATION
     Route: 065
  5. ZELITREX [Concomitant]
     Active Substance: VALACYCLOVIR HYDROCHLORIDE
     Indication: PRODUCT USED FOR UNKNOWN INDICATION
     Route: 065
  6. INNOHEP [Concomitant]
     Active Substance: TINZAPARIN SODIUM
     Indication: PRODUCT USED FOR UNKNOWN INDICATION
     Route: 065
  7. ISTODAX [Suspect]
     Active Substance: ROMIDEPSIN
     Indication: METASTASES TO LYMPH NODES
     Route: 041
     Dates: start: 20200102
  8. ISTODAX [Suspect]
     Active Substance: ROMIDEPSIN
     Route: 041
     Dates: start: 20200407
  9. ISTODAX [Suspect]
     Active Substance: ROMIDEPSIN
     Route: 041
     Dates: start: 20200506, end: 20200520

REACTIONS (3)
  - Haematotoxicity [Not Recovered/Not Resolved]
  - Anaemia [Recovered/Resolved]
  - Thrombocytopenia [Recovered/Resolved]

NARRATIVE: CASE EVENT DATE: 201912
